FAERS Safety Report 4442225-5 (Version None)
Quarter: 2004Q3

REPORT INFORMATION
  Report Type: 
  Country: None (occurrence: None)
  Receive Date: 20040903
  Receipt Date: 20040719
  Transmission Date: 20050211
  Serious: Yes (Other)
  Sender: FDA-Public Use
  Company Number: 2004UW14958

PATIENT
  Age: 74 Year
  Sex: Female
  Weight: 81.1939 kg

DRUGS (13)
  1. CRESTOR [Suspect]
     Indication: BLOOD CHOLESTEROL INCREASED
     Dosage: 20 MG PO
     Route: 048
  2. ALDACTONE [Concomitant]
  3. AVANDIA [Concomitant]
  4. GLYBURIDE [Concomitant]
  5. PREVACID [Concomitant]
  6. COLESTID [Concomitant]
  7. AVALIDE [Concomitant]
  8. MULTI-VITAMIN [Concomitant]
  9. VITAMIN E [Concomitant]
  10. NO MATCH [Concomitant]
  11. OSCAL [Concomitant]
  12. ASPIRIN [Concomitant]
  13. PRANDIN [Concomitant]

REACTIONS (3)
  - KIDNEY INFECTION [None]
  - MUSCLE CRAMP [None]
  - RENAL FAILURE [None]
